FAERS Safety Report 9549602 (Version 1)
Quarter: 2013Q2

REPORT INFORMATION
  Report Type: Spontaneous
  Country: US (occurrence: None)
  Receive Date: 20130627
  Receipt Date: 20130627
  Transmission Date: 20140414
  Serious: No
  Sender: FDA-Public Use
  Company Number: 1000043875

PATIENT
  Age: 60 Year
  Sex: Female

DRUGS (10)
  1. LINZESS (LINACLOTIDE) [Suspect]
     Indication: IRRITABLE BOWEL SYNDROME
     Dates: start: 20130326
  2. DIOVAN (VALSARTAN) [Concomitant]
  3. ACIPHEX (RABEPRAZOLE SODIUM) [Concomitant]
  4. CARVEDILOL [Concomitant]
  5. METFORMIN [Concomitant]
  6. ATORVASTATIN [Concomitant]
  7. SINGULAIR [Concomitant]
  8. FLORASTOR (SACCHAROMYCES BOULARDII) [Concomitant]
  9. COSMIN DS (GLUCOSAMINE HCL, CHONDROITIN SULFATE) [Concomitant]
  10. BIOSIL [Concomitant]

REACTIONS (2)
  - Pain [None]
  - Back pain [None]
